FAERS Safety Report 15824700 (Version 1)
Quarter: 2019Q1

REPORT INFORMATION
  Report Type: Spontaneous
  Country: US (occurrence: US)
  Receive Date: 20190115
  Receipt Date: 20190115
  Transmission Date: 20190417
  Serious: No
  Sender: FDA-Public Use
  Company Number: US-ASTRAZENECA-2019SE05815

PATIENT
  Sex: Male

DRUGS (2)
  1. LATUDA [Concomitant]
     Active Substance: LURASIDONE HYDROCHLORIDE
     Dosage: FROM UNKNOWN DOSE GRADUALLY INCREASED TO 80 MG
     Route: 048
     Dates: start: 20170512
  2. SEROQUEL [Suspect]
     Active Substance: QUETIAPINE FUMARATE
     Route: 048

REACTIONS (4)
  - Paranoia [Unknown]
  - Hallucination, auditory [Unknown]
  - Abnormal behaviour [Unknown]
  - Weight increased [Unknown]
